FAERS Safety Report 6547901-6 (Version None)
Quarter: 2010Q1

REPORT INFORMATION
  Report Type: 
  Country: None (occurrence: None)
  Receive Date: 20100124
  Receipt Date: 20091029
  Transmission Date: 20100710
  Serious: Yes (Other)
  Sender: FDA-Public Use
  Company Number: US-ALEXION-A200900775

PATIENT

DRUGS (8)
  1. SOLIRIS [Suspect]
     Indication: PAROXYSMAL NOCTURNAL HAEMOGLOBINURIA
     Dosage: 600 MG, X4 WEEKS
     Route: 042
     Dates: start: 20070516, end: 20070601
  2. SOLIRIS [Suspect]
     Dosage: 900 MG, EVERY TWO WEEKS
     Route: 042
     Dates: start: 20070613
  3. COUMADIN [Concomitant]
     Dosage: 7.5 MG, UNK
     Route: 048
  4. PREDNISONE [Concomitant]
     Dosage: 20 MG, QD
     Route: 048
  5. KLONOPIN [Concomitant]
     Dosage: QHS PRN
     Route: 048
  6. PROZAC                             /00724401/ [Concomitant]
     Dosage: 20 MG, QD
     Route: 048
  7. FOLIC ACID [Concomitant]
     Dosage: 800 MCG, QD
     Route: 048
  8. POTASSIUM CHLORIDE [Concomitant]
     Dosage: PRN
     Route: 048

REACTIONS (2)
  - ARTHRALGIA [None]
  - MENISCUS LESION [None]
